FAERS Safety Report 9353017 (Version 1)
Quarter: 2013Q2

REPORT INFORMATION
  Report Type: Spontaneous
  Country: US (occurrence: US)
  Receive Date: 20130618
  Receipt Date: 20130618
  Transmission Date: 20140414
  Serious: Yes (Hospitalization)
  Sender: FDA-Public Use
  Company Number: US-SANOFI-AVENTIS-2013SA059790

PATIENT
  Age: 57 Year
  Sex: Female

DRUGS (2)
  1. LANTUS SOLOSTAR [Suspect]
     Indication: TYPE 2 DIABETES MELLITUS
     Dosage: 3 YEARS BEFOR JUN 1 DOSE:30 UNIT(S)
     Route: 051
     Dates: end: 201206
  2. SOLOSTAR [Suspect]
     Indication: TYPE 2 DIABETES MELLITUS
     Dosage: THERAPY START DATE - 3 YEARS BEFORE 1
     Dates: end: 201206

REACTIONS (6)
  - Hypersensitivity [Unknown]
  - Gingival bleeding [Recovered/Resolved]
  - Tooth disorder [Not Recovered/Not Resolved]
  - Loose tooth [Not Recovered/Not Resolved]
  - Tooth loss [Not Recovered/Not Resolved]
  - Jaw disorder [Not Recovered/Not Resolved]
